FAERS Safety Report 7325396-2 (Version None)
Quarter: 2011Q1

REPORT INFORMATION
  Report Type: 
  Country: None (occurrence: None)
  Receive Date: 20110218
  Receipt Date: 20110207
  Transmission Date: 20110831
  Serious: Yes (Other)
  Sender: FDA-Public Use
  Company Number: 2011MA001272

PATIENT
  Age: 38 Year
  Sex: Female

DRUGS (3)
  1. ALPRAZOLAM [Concomitant]
  2. MIRTAZAPINE [Suspect]
     Indication: DEPRESSION
     Dosage: 45 MG; ; PO
     Route: 048
     Dates: end: 20101201
  3. AMOXICILLIN [Concomitant]

REACTIONS (1)
  - HAEMOLYTIC ANAEMIA [None]
